FAERS Safety Report 8866114 (Version 1)
Quarter: 2012Q4

REPORT INFORMATION
  Report Type: 
  Country: FR (occurrence: FR)
  Receive Date: 20121025
  Receipt Date: 20121025
  Transmission Date: 20130627
  Serious: Yes (Hospitalization)
  Sender: FDA-Public Use
  Company Number: FR-ASTRAZENECA-2012SE80081

PATIENT
  Age: 53 Year
  Sex: Female

DRUGS (4)
  1. BRILIQUE [Suspect]
     Indication: ACUTE CORONARY SYNDROME
     Route: 048
     Dates: end: 201210
  2. CARDENSIEL [Concomitant]
     Indication: ACUTE CORONARY SYNDROME
     Dates: end: 201210
  3. KARDEGIC [Concomitant]
  4. UNSPECIFIED STATINS [Concomitant]

REACTIONS (1)
  - Atrioventricular block complete [Recovered/Resolved]
